FAERS Safety Report 7018109-5 (Version None)
Quarter: 2010Q3

REPORT INFORMATION
  Report Type: 
  Country: None (occurrence: None)
  Receive Date: 20100927
  Receipt Date: 20100927
  Transmission Date: 20110219
  Serious: Yes (Other)
  Sender: FDA-Public Use
  Company Number: None

PATIENT
  Age: 60 Year
  Sex: Female
  Weight: 74.8435 kg

DRUGS (1)
  1. ALDARA [Suspect]
     Dosage: 1 DROP CUTANEOUS
     Route: 003

REACTIONS (4)
  - ECZEMA [None]
  - INFLUENZA LIKE ILLNESS [None]
  - PSORIASIS [None]
  - UNEVALUABLE EVENT [None]
